FAERS Safety Report 9739240 (Version 1)
Quarter: 2013Q4

REPORT INFORMATION
  Report Type: Spontaneous
  Country: US (occurrence: US)
  Receive Date: 20131209
  Receipt Date: 20131209
  Transmission Date: 20140711
  Serious: No
  Sender: FDA-Public Use
  Company Number: US-TEVA-445659USA

PATIENT
  Age: 35 Year
  Sex: Female
  Weight: 53.57 kg

DRUGS (3)
  1. PARAGARD 380A [Suspect]
     Indication: CONTRACEPTION
     Route: 015
     Dates: start: 20131118
  2. CETALOPRAM [Concomitant]
     Indication: STRESS
     Dosage: 20 MILLIGRAM DAILY;
     Route: 048
  3. CETALOPRAM [Concomitant]
     Indication: ANXIETY

REACTIONS (5)
  - Pain [Recovered/Resolved]
  - Paraesthesia [Recovered/Resolved]
  - Gait disturbance [Not Recovered/Not Resolved]
  - Pelvic pain [Not Recovered/Not Resolved]
  - Device expulsion [Unknown]
